FAERS Safety Report 25394019 (Version 1)
Quarter: 2025Q2

REPORT INFORMATION
  Report Type: Report from Study
  Country: ES (occurrence: ES)
  Receive Date: 20250604
  Receipt Date: 20250604
  Transmission Date: 20250717
  Serious: Yes (Other)
  Sender: RANBAXY
  Company Number: ES-SUN PHARMACEUTICAL INDUSTRIES INC-2025R1-510852

PATIENT
  Age: 38 Year
  Sex: Male

DRUGS (3)
  1. DICLOFENAC [Suspect]
     Active Substance: DICLOFENAC
     Indication: Back pain
     Dosage: 120 MILLIGRAM, QD
     Route: 065
  2. EBASTINE [Concomitant]
     Active Substance: EBASTINE
     Indication: Back pain
     Route: 065
  3. CODEINE [Concomitant]
     Active Substance: CODEINE
     Indication: Back pain
     Route: 065

REACTIONS (2)
  - Drug-induced liver injury [Recovered/Resolved]
  - Drug reaction with eosinophilia and systemic symptoms [Recovered/Resolved]
